FAERS Safety Report 21065797 (Version 1)
Quarter: 2022Q3

REPORT INFORMATION
  Report Type: Spontaneous
  Country: CN (occurrence: CN)
  Receive Date: 20220711
  Receipt Date: 20220711
  Transmission Date: 20221026
  Serious: Yes (Hospitalization)
  Sender: FDA-Public Use
  Company Number: CN-PFIZER INC-PV202200017556

PATIENT
  Age: 35 Year
  Sex: Female
  Weight: 55 kg

DRUGS (3)
  1. EPIRUBICIN [Suspect]
     Active Substance: EPIRUBICIN
     Indication: Soft tissue sarcoma
     Dosage: 110 MG, 1X/DAY
     Route: 041
     Dates: start: 20220510, end: 20220510
  2. VINDESINE SULFATE [Suspect]
     Active Substance: VINDESINE SULFATE
     Indication: Soft tissue sarcoma
     Dosage: 4 MG, 1X/DAY
     Route: 041
     Dates: start: 20220510, end: 20220510
  3. CYCLOPHOSPHAMIDE [Suspect]
     Active Substance: CYCLOPHOSPHAMIDE
     Indication: Soft tissue sarcoma
     Dosage: 1.8 G, 1X/DAY
     Route: 041
     Dates: start: 20220510, end: 20220510

REACTIONS (4)
  - Cytopenia [Recovering/Resolving]
  - White blood cell count decreased [Recovering/Resolving]
  - Neutrophil count decreased [Recovering/Resolving]
  - Pyrexia [Recovering/Resolving]

NARRATIVE: CASE EVENT DATE: 20220517
